FAERS Safety Report 11214346 (Version 1)
Quarter: 2015Q2

REPORT INFORMATION
  Report Type: Spontaneous
  Country: FR (occurrence: FR)
  Receive Date: 20150624
  Receipt Date: 20150624
  Transmission Date: 20150821
  Serious: Yes (Life-Threatening, Hospitalization)
  Sender: FDA-Public Use
  Company Number: FR-ROCHE-1596353

PATIENT
  Age: 61 Year
  Sex: Female

DRUGS (6)
  1. TERCIAN [Concomitant]
     Active Substance: CYAMEMAZINE
     Route: 048
     Dates: end: 20150402
  2. LEPTICUR [Concomitant]
     Active Substance: TROPATEPINE HYDROCHLORIDE
     Route: 065
     Dates: end: 20150402
  3. RISPERDAL [Concomitant]
     Active Substance: RISPERIDONE
     Dosage: 2 MG
     Route: 048
     Dates: end: 20150402
  4. RIVOTRIL [Suspect]
     Active Substance: CLONAZEPAM
     Indication: STATUS EPILEPTICUS
     Route: 041
     Dates: start: 20150402, end: 20150402
  5. VALIUM [Interacting]
     Active Substance: DIAZEPAM
     Indication: PRODUCT USED FOR UNKNOWN INDICATION
     Route: 048
     Dates: end: 20150402
  6. PRODILANTIN [Interacting]
     Active Substance: FOSPHENYTOIN SODIUM
     Indication: STATUS EPILEPTICUS
     Dosage: 75 MG/ML
     Route: 042
     Dates: start: 20150402, end: 20150402

REACTIONS (2)
  - Drug interaction [Unknown]
  - Cardio-respiratory arrest [Recovered/Resolved]

NARRATIVE: CASE EVENT DATE: 20150402
